FAERS Safety Report 9583601 (Version 1)
Quarter: 2013Q4

REPORT INFORMATION
  Report Type: Spontaneous
  Country: US (occurrence: US)
  Receive Date: 20131002
  Receipt Date: 20131002
  Transmission Date: 20140711
  Serious: No
  Sender: FDA-Public Use
  Company Number: US-AMGEN-USASP2013048314

PATIENT
  Age: 61 Year
  Sex: Female

DRUGS (12)
  1. ENBREL [Suspect]
     Indication: PRODUCT USED FOR UNKNOWN INDICATION
     Dosage: 50 MG, 2 TIMES/WK 72-96 HOURS APART FOR THREE MONTHS
     Route: 058
  2. PAXIL                              /00500401/ [Concomitant]
     Dosage: 10 MG, UNK
  3. ZYRTEC ALLERGY [Concomitant]
     Dosage: 10 MG, UNK
  4. MELOXICAM [Concomitant]
     Dosage: 15 MG, UNK
  5. BENTYL [Concomitant]
     Dosage: 10 MG, UNK
  6. GLUCOPHAGE [Concomitant]
     Dosage: 500 MG, UNK
  7. OMEPRAZOLE [Concomitant]
     Dosage: 20 MG, UNK
  8. LEVEMIR [Concomitant]
     Dosage: UNK
  9. GLIPIZIDE [Concomitant]
     Dosage: 10 MG, UNK
  10. VITAMIN B-12 [Concomitant]
     Dosage: 1000 MUG, UNK
  11. VITAMIN D                          /00107901/ [Concomitant]
     Dosage: 400 UNIT, UNK
  12. LIALDA [Concomitant]
     Dosage: 1.2 G, UNK

REACTIONS (1)
  - Cystitis [Unknown]
